FAERS Safety Report 9442417 (Version 1)
Quarter: 2013Q3

REPORT INFORMATION
  Report Type: Spontaneous
  Country: US (occurrence: US)
  Receive Date: 20130806
  Receipt Date: 20130806
  Transmission Date: 20140515
  Serious: No
  Sender: FDA-Public Use
  Company Number: US-GLAXOSMITHKLINE-A1023086A

PATIENT
  Age: 6 Year
  Sex: Male

DRUGS (4)
  1. ADVAIR [Suspect]
     Indication: ASTHMA
     Dosage: 2SPR TWICE PER DAY
     Route: 055
     Dates: start: 201304, end: 201305
  2. XOPENEX [Concomitant]
  3. NASONEX [Concomitant]
  4. CLARINEX [Concomitant]

REACTIONS (2)
  - Throat irritation [Not Recovered/Not Resolved]
  - Headache [Not Recovered/Not Resolved]
